FAERS Safety Report 9966651 (Version 2)
Quarter: 2014Q1

REPORT INFORMATION
  Report Type: Report from Study
  Country: US (occurrence: US)
  Receive Date: 20140305
  Receipt Date: 20140305
  Transmission Date: 20141002
  Serious: No
  Sender: FDA-Public Use
  Company Number: US-ABBVIE-13P-163-1095949-00

PATIENT
  Age: 77 Year
  Sex: Male

DRUGS (14)
  1. HUMIRA [Suspect]
     Indication: CROHN^S DISEASE
     Dates: start: 20130322
  2. OMEPRAZOLE [Concomitant]
     Indication: GASTROOESOPHAGEAL REFLUX DISEASE
  3. ZESTRIL [Concomitant]
     Indication: PRODUCT USED FOR UNKNOWN INDICATION
  4. ATENOLOL [Concomitant]
     Indication: BLOOD PRESSURE MANAGEMENT
     Dosage: IN AM
  5. MULTIVITAMIN [Concomitant]
     Indication: PRODUCT USED FOR UNKNOWN INDICATION
     Dosage: 1 AM
  6. IMDUR [Concomitant]
     Indication: ANGINA PECTORIS
     Dosage: 1 1/2 TAB IN AM
  7. WELLBUTRIN [Concomitant]
     Indication: ANXIETY
  8. LASIX [Concomitant]
     Indication: DIURETIC THERAPY
     Dosage: IN AM
  9. COUMADIN [Concomitant]
     Indication: CARDIAC DISORDER
     Dosage: AT BEDTIME
  10. LIPITOR [Concomitant]
     Indication: HYPERCHOLESTEROLAEMIA
     Dosage: AT BEDTIME
  11. FLOMAX [Concomitant]
     Indication: PRODUCT USED FOR UNKNOWN INDICATION
  12. ALBUTEROL [Concomitant]
     Indication: EMPHYSEMA
  13. LOSARTAN [Concomitant]
     Indication: BLOOD PRESSURE MANAGEMENT
  14. AMLODIPINE [Concomitant]

REACTIONS (4)
  - Fatigue [Unknown]
  - Pain [Unknown]
  - Neck pain [Unknown]
  - Arthralgia [Not Recovered/Not Resolved]
